FAERS Safety Report 9705996 (Version 1)
Quarter: 2013Q4

REPORT INFORMATION
  Report Type: Spontaneous
  Country: US (occurrence: US)
  Receive Date: 20131122
  Receipt Date: 20131122
  Transmission Date: 20140711
  Serious: Yes (Hospitalization)
  Sender: FDA-Public Use
  Company Number: US-B.I. PHARMACEUTICALS,INC./RIDGEFIELD-2013-BI-38207BP

PATIENT
  Age: 58 Year
  Sex: Male
  Weight: 105 kg

DRUGS (11)
  1. COMBIVENT [Suspect]
     Indication: CHRONIC OBSTRUCTIVE PULMONARY DISEASE
     Dosage: STRENGTH: 20 MCG / 100 MCG; DAILY DOSE: 80 MCG/400MCG
     Route: 055
     Dates: start: 20130818
  2. MORPHINE SLOW RELEASE [Concomitant]
     Indication: BACK PAIN
     Dosage: 60 MG
     Route: 048
     Dates: start: 2003
  3. MORPHINE SLOW RELEASE [Concomitant]
     Indication: ARTHRALGIA
  4. LYRICA [Concomitant]
     Indication: GROIN PAIN
     Dosage: 600 MG
     Route: 048
     Dates: start: 2008
  5. THEODUR [Concomitant]
     Indication: ASTHMA
     Dosage: 600 MG
     Dates: start: 2003
  6. PANTOPRAZOLE [Concomitant]
     Indication: NAUSEA
     Dosage: 40 MG
     Route: 048
     Dates: start: 2007
  7. PAROXETINE [Concomitant]
     Dosage: 30 MG
     Route: 048
     Dates: start: 2012
  8. ALPRAZOLAM [Concomitant]
     Indication: AFFECT LABILITY
     Dosage: 1.5 MG
     Route: 048
     Dates: start: 2009
  9. FUROSEMIDE [Concomitant]
     Indication: FLUID RETENTION
     Dosage: 20 MG
     Route: 048
     Dates: start: 2012
  10. CLOPIDOGREL [Concomitant]
     Indication: ANTICOAGULANT THERAPY
     Dosage: 75 MG
     Route: 048
     Dates: start: 2007
  11. PHENERGAN [Concomitant]
     Indication: NAUSEA
     Dosage: 25 MG
     Route: 048
     Dates: start: 2003

REACTIONS (3)
  - Respiratory arrest [Recovered/Resolved]
  - Kidney infection [Recovered/Resolved]
  - Bladder obstruction [Not Recovered/Not Resolved]
